FAERS Safety Report 25532538 (Version 1)
Quarter: 2025Q3

REPORT INFORMATION
  Report Type: Spontaneous
  Country: US (occurrence: US)
  Receive Date: 20250709
  Receipt Date: 20250709
  Transmission Date: 20251021
  Serious: No
  Sender: SANDOZ
  Company Number: US-SANDOZ-SDZ2025US047575

PATIENT
  Age: 66 Year
  Sex: Female

DRUGS (3)
  1. PRALUENT [Suspect]
     Active Substance: ALIROCUMAB
     Indication: Product used for unknown indication
     Dosage: 75 MG, Q2W
     Route: 065
  2. ROSUVASTATIN [Suspect]
     Active Substance: ROSUVASTATIN
     Indication: Product used for unknown indication
     Dosage: 20 MG, QD
     Route: 065
  3. LEQVIO [Concomitant]
     Active Substance: INCLISIRAN SODIUM
     Indication: Low density lipoprotein decreased
     Route: 058
     Dates: start: 20240528

REACTIONS (2)
  - Myalgia [Unknown]
  - Therapeutic product effect incomplete [Unknown]
